FAERS Safety Report 5313523-8 (Version None)
Quarter: 2007Q2

REPORT INFORMATION
  Report Type: 
  Country: None (occurrence: None)
  Receive Date: 20070424
  Receipt Date: 20070417
  Transmission Date: 20071010
  Serious: Yes (Life-Threatening, Hospitalization)
  Sender: FDA-Public Use
  Company Number: 2007P1000203

PATIENT
  Age: 1 Year
  Sex: Female

DRUGS (3)
  1. BUSULFAN (BUSULFAN) [Suspect]
     Indication: STEM CELL TRANSPLANT
     Dosage: IV
     Route: 042
  2. ALKERAN [Suspect]
     Dosage: IV
     Route: 042
  3. CYCLOPHOSPHAMIDE [Suspect]
     Dosage: IV
     Route: 042

REACTIONS (7)
  - ANURIA [None]
  - ASCITES [None]
  - DIALYSIS [None]
  - HYPERBILIRUBINAEMIA [None]
  - STEM CELL TRANSPLANT [None]
  - VENOOCCLUSIVE LIVER DISEASE [None]
  - WEIGHT INCREASED [None]
